FAERS Safety Report 17029135 (Version 2)
Quarter: 2023Q1

REPORT INFORMATION
  Report Type: Spontaneous
  Country: US (occurrence: US)
  Receive Date: 20191114
  Receipt Date: 20230322
  Transmission Date: 20230417
  Serious: No
  Sender: FDA-Public Use
  Company Number: US-LUNDBECK-DKLU3007246

PATIENT
  Age: 68 Year
  Sex: Male
  Weight: 83.915 kg

DRUGS (5)
  1. NORTHERA [Suspect]
     Active Substance: DROXIDOPA
     Indication: Parkinson^s disease
     Route: 048
     Dates: start: 20191014
  2. NORTHERA [Suspect]
     Active Substance: DROXIDOPA
     Indication: Dizziness
     Dosage: TWICE DAILY (IN THE MORNING AND AT NOON)
     Route: 048
  3. NORTHERA [Suspect]
     Active Substance: DROXIDOPA
     Dosage: GIVE 1 CAPSULE TWICE DAILY FOR A COUPLE DAYS THEN 1 CAPSULE DAILY FOR A COUPLE OF DAYS. THE PHARMACI
     Route: 048
  4. NORTHERA [Suspect]
     Active Substance: DROXIDOPA
     Dosage: GIVE 1 CAPSULE TWICE DAILY FOR A COUPLE DAYS THEN 1 CAPSULE DAILY FOR A COUPLE OF DAYS. THE PHARMACI
     Route: 048
  5. NORTHERA [Suspect]
     Active Substance: DROXIDOPA
     Dosage: GIVE 1 CAPSULE TWICE DAILY FOR A COUPLE DAYS THEN 1 CAPSULE DAILY FOR A COUPLE OF DAYS. THE PHARMACI
     Route: 048

REACTIONS (1)
  - Diarrhoea [Unknown]

NARRATIVE: CASE EVENT DATE: 20191014
